FAERS Safety Report 5319417-6 (Version None)
Quarter: 2007Q2

REPORT INFORMATION
  Report Type: 
  Country: None (occurrence: None)
  Receive Date: 20070508
  Receipt Date: 20070426
  Transmission Date: 20071010
  Serious: Yes (Hospitalization)
  Sender: FDA-Public Use
  Company Number: GB-PFIZER INC-2007025330

PATIENT
  Age: 54 Year
  Sex: Female

DRUGS (20)
  1. LYRICA [Suspect]
     Route: 048
  2. OXYCODONE HCL [Concomitant]
  3. DRUG, UNSPECIFIED [Concomitant]
  4. ALL OTHER THERAPEUTIC PRODUCTS [Concomitant]
     Route: 061
  5. GLIMEPIRIDE [Concomitant]
     Route: 048
  6. INSTILLAGEL [Concomitant]
  7. FOLIC ACID [Concomitant]
     Route: 048
  8. CALCICHEW-D3 [Concomitant]
     Route: 048
  9. RISEDRONATE SODIUM [Concomitant]
     Route: 048
  10. METOCLOPRAMIDE [Concomitant]
     Route: 048
  11. ASCORBIC ACID [Concomitant]
     Route: 048
  12. NABUMETONE [Concomitant]
     Route: 048
  13. TIOTROPIUM [Concomitant]
     Route: 055
  14. HYDROMORPHONE HYDROCHLORIDE [Concomitant]
     Route: 048
  15. AMITRIPTYLINE HCL [Concomitant]
     Route: 048
  16. ZOPICLONE [Concomitant]
     Route: 048
  17. OMEPRAZOLE [Concomitant]
     Route: 048
  18. FUROSEMIDE [Concomitant]
     Route: 048
  19. MOVICOL [Concomitant]
     Route: 048
  20. ALL OTHER THERAPEUTIC PRODUCTS [Concomitant]

REACTIONS (1)
  - LOSS OF CONSCIOUSNESS [None]
